FAERS Safety Report 9522025 (Version 1)
Quarter: 2013Q1

REPORT INFORMATION
  Report Type: Spontaneous
  Country: US (occurrence: None)
  Receive Date: 20130305
  Receipt Date: 20130305
  Transmission Date: 20140127
  Serious: Yes (Other)
  Sender: FDA-Public Use
  Company Number: 163-21880-12070946

PATIENT
  Age: 71 Year
  Sex: Female

DRUGS (3)
  1. REVLIMID [Suspect]
     Indication: PLASMA CELL MYELOMA
     Dosage: 21 IN 21 D
     Route: 048
     Dates: start: 20110512
  2. MEPRON [Suspect]
     Dosage: 5ML-1-2 TEASPOONS,
     Route: 048
     Dates: start: 20111129
  3. LYRICA [Suspect]
     Indication: NEUROPATHY PERIPHERAL
     Dosage: 2 IN 1 D
     Route: 048
     Dates: start: 20111010

REACTIONS (3)
  - Neuropathy peripheral [None]
  - Local swelling [None]
  - Diarrhoea [None]
